FAERS Safety Report 16017329 (Version 3)
Quarter: 2019Q1

REPORT INFORMATION
  Report Type: Spontaneous
  Country: IT (occurrence: IT)
  Receive Date: 20190228
  Receipt Date: 20190321
  Transmission Date: 20190418
  Serious: Yes (Hospitalization, Other)
  Sender: FDA-Public Use
  Company Number: IT-PFIZER INC-2019086218

PATIENT
  Age: 25 Year
  Sex: Female
  Weight: 64 kg

DRUGS (2)
  1. EUTIROX [Concomitant]
     Active Substance: LEVOTHYROXINE SODIUM
     Dosage: UNK
  2. DOSTINEX [Suspect]
     Active Substance: CABERGOLINE
     Indication: BREAST DISCHARGE
     Dosage: 0.25MG ONCE DAILY ,EVERY 2 DAYS (0.25MG MONDAY AND 0.25MG THURSDAY)
     Route: 048
     Dates: start: 20181119, end: 20181208

REACTIONS (2)
  - Breast mass [Unknown]
  - Menstruation irregular [Unknown]

NARRATIVE: CASE EVENT DATE: 20181214
